FAERS Safety Report 13374598 (Version 1)
Quarter: 2017Q1

REPORT INFORMATION
  Report Type: Report from Study
  Country: SE (occurrence: BE)
  Receive Date: 20170327
  Receipt Date: 20170327
  Transmission Date: 20170429
  Serious: Yes (Hospitalization)
  Sender: FDA-Public Use
  Company Number: SE-PFIZER INC-199648311PHANOV

PATIENT
  Age: 9 Year
  Sex: Male
  Weight: 18 kg

DRUGS (3)
  1. SOMATROPIN [Suspect]
     Active Substance: SOMATROPIN
     Indication: GROWTH HORMONE DEFICIENCY
  2. SOMATROPIN [Suspect]
     Active Substance: SOMATROPIN
     Indication: DWARFISM
     Dosage: 2.0 IU, 1X/DAY (0.16 MG/KG/WK)
     Route: 058
     Dates: start: 19920917, end: 19951211
  3. ELTHYRONE [Concomitant]
     Active Substance: LEVOTHYROXINE
     Dosage: UNK
     Dates: start: 199404

REACTIONS (1)
  - Hodgkin^s disease nodular sclerosis stage II [Unknown]

NARRATIVE: CASE EVENT DATE: 199512
